FAERS Safety Report 11185083 (Version 1)
Quarter: 2015Q2

REPORT INFORMATION
  Report Type: Report from Study
  Country: US (occurrence: US)
  Receive Date: 20150612
  Receipt Date: 20150612
  Transmission Date: 20150821
  Serious: Yes (Hospitalization, Other)
  Sender: FDA-Public Use
  Company Number: US-TEVA-569316USA

PATIENT
  Sex: Male

DRUGS (14)
  1. PRESERVISION [Concomitant]
     Active Substance: MINERALS\VITAMINS
     Dates: start: 2006
  2. ELIQUIS [Concomitant]
     Active Substance: APIXABAN
     Dates: start: 201411
  3. LOSARTAN [Concomitant]
     Active Substance: LOSARTAN
     Dates: start: 2007
  4. ASPIRIN. [Concomitant]
     Active Substance: ASPIRIN
     Dates: start: 2012
  5. COLESTIPOL HYDROCHLORIDE. [Concomitant]
     Active Substance: COLESTIPOL HYDROCHLORIDE
     Dates: start: 2009
  6. MULTAQ [Concomitant]
     Active Substance: DRONEDARONE
     Dates: start: 20150105
  7. LOPERAMIDE [Suspect]
     Active Substance: LOPERAMIDE
     Indication: DIARRHOEA
     Dosage: 6 MILLIGRAM DAILY;
     Route: 048
     Dates: start: 2011
  8. VITAMIN B12 [Concomitant]
     Active Substance: CYANOCOBALAMIN
     Dates: start: 2012
  9. MAGNESIUM [Concomitant]
     Active Substance: MAGNESIUM
     Dates: start: 2007
  10. FENOFIBRATE. [Concomitant]
     Active Substance: FENOFIBRATE
     Dates: start: 2009
  11. METOPROLOL [Concomitant]
     Active Substance: METOPROLOL
     Dates: start: 2007
  12. EYLEA [Suspect]
     Active Substance: AFLIBERCEPT
     Indication: NEOVASCULAR AGE-RELATED MACULAR DEGENERATION
     Dosage: .0667 MILLIGRAM DAILY;
     Route: 031
     Dates: start: 20120829
  13. DICYCLOMINE [Concomitant]
     Active Substance: DICYCLOMINE HYDROCHLORIDE
     Dates: start: 2009
  14. DILTIAZEM [Concomitant]
     Active Substance: DILTIAZEM
     Dates: start: 2007

REACTIONS (1)
  - Intestinal obstruction [Recovered/Resolved]

NARRATIVE: CASE EVENT DATE: 20150322
